FAERS Safety Report 8068571-4 (Version None)
Quarter: 2012Q1

REPORT INFORMATION
  Report Type: 
  Country: None (occurrence: None)
  Receive Date: 20120124
  Receipt Date: 20111107
  Transmission Date: 20120608
  Serious: No
  Sender: FDA-Public Use
  Company Number: US-AMGEN-USASP2011058196

PATIENT
  Age: 61 Year
  Sex: Female

DRUGS (6)
  1. PROLIA [Suspect]
     Indication: OSTEOPENIA
     Dosage: UNK UNK, Q6MO
     Dates: start: 20111101
  2. EXTRA STRENGTH TYLENOL [Concomitant]
  3. VITAMIN B COMPLEX CAP [Concomitant]
  4. MULTIVITAMIN                       /00097801/ [Concomitant]
     Dosage: UNK UNK, QD
  5. VITAMIN D [Concomitant]
  6. CALCIUM [Concomitant]

REACTIONS (2)
  - MUSCLE TIGHTNESS [None]
  - PAIN IN JAW [None]
